FAERS Safety Report 5275742-9 (Version None)
Quarter: 2007Q1

REPORT INFORMATION
  Report Type: 
  Country: None (occurrence: None)
  Receive Date: 20061213
  Receipt Date: 20040227
  Transmission Date: 20070707
  Serious: Yes (Other)
  Sender: FDA-Public Use
  Company Number: 2004UW03821

PATIENT
  Age: 39 Year
  Sex: Male
  Weight: 90.7194 kg

DRUGS (1)
  1. SEROQUEL [Suspect]
     Dosage: 600 MG ONCE PO
     Route: 048
     Dates: start: 20040226, end: 20040226

REACTIONS (3)
  - CONSCIOUSNESS FLUCTUATING [None]
  - MEDICATION ERROR [None]
  - MEMORY IMPAIRMENT [None]
